FAERS Safety Report 17282777 (Version 2)
Quarter: 2020Q1

REPORT INFORMATION
  Report Type: Report from Study
  Country: NL (occurrence: NL)
  Receive Date: 20200117
  Receipt Date: 20200130
  Transmission Date: 20200409
  Serious: Yes (Death)
  Sender: FDA-Public Use
  Company Number: NVSC2020NL009585

PATIENT
  Sex: Male
  Weight: 65 kg

DRUGS (4)
  1. SANDOSTATIN LAR DEPOT [Suspect]
     Active Substance: OCTREOTIDE ACETATE
     Indication: DIABETIC RETINOPATHY
     Dosage: UNK
     Route: 030
     Dates: start: 20140127
  2. SANDOSTATIN LAR DEPOT [Suspect]
     Active Substance: OCTREOTIDE ACETATE
     Indication: ACROMEGALY
     Dosage: 20 MG, QW4 (1 PER FOUR WEEK)
     Route: 030
     Dates: start: 201304
  3. INSULINA LISPRO [Concomitant]
     Active Substance: INSULIN LISPRO
     Indication: DIABETES MELLITUS
     Route: 065
  4. PROTAMIN INSULIN HS [Concomitant]
     Indication: DIABETES MELLITUS
     Route: 065

REACTIONS (4)
  - Dyspnoea [Fatal]
  - Oedema [Fatal]
  - General physical health deterioration [Fatal]
  - Product use in unapproved indication [Unknown]
